FAERS Safety Report 9119361 (Version 2)
Quarter: 2013Q3

REPORT INFORMATION
  Report Type: Spontaneous
  Country: US (occurrence: US)
  Receive Date: 20130207
  Receipt Date: 20130829
  Transmission Date: 20140515
  Serious: Yes (Other)
  Sender: FDA-Public Use
  Company Number: US-ASTRAZENECA-2012SE96166

PATIENT
  Age: 67 Year
  Sex: Male

DRUGS (12)
  1. CAPRELSA [Suspect]
     Indication: MEDULLARY THYROID CANCER
     Route: 048
     Dates: start: 20121210
  2. CAPASTAT [Concomitant]
  3. ALLOPURINOL [Concomitant]
  4. COMPAZINE [Concomitant]
  5. PACLIFAXEL [Concomitant]
  6. TAMSULOSIN [Concomitant]
  7. ZOMETA [Concomitant]
  8. PROCHLORPERAZINE [Concomitant]
  9. ZOFRAN [Concomitant]
  10. ONDANSETRON HCL [Concomitant]
  11. PROCHLORPERAZINE MALEATE [Concomitant]
  12. TAMSULOSIN HCL [Concomitant]

REACTIONS (4)
  - Intestinal perforation [Unknown]
  - Hot flush [Unknown]
  - Rash [Unknown]
  - Rash maculo-papular [Unknown]
